FAERS Safety Report 8093761-4 (Version None)
Quarter: 2012Q1

REPORT INFORMATION
  Report Type: 
  Country: None (occurrence: None)
  Receive Date: 20120129
  Receipt Date: 20111026
  Transmission Date: 20120608
  Serious: No
  Sender: FDA-Public Use
  Company Number: US-ABBOTT-11P-163-0866134-00

PATIENT
  Age: 71 Year
  Sex: Male
  Weight: 62.652 kg

DRUGS (5)
  1. HUMIRA [Suspect]
     Route: 058
     Dates: start: 20110818, end: 20111013
  2. METHOTREXATE [Concomitant]
     Indication: ANKYLOSING SPONDYLITIS
  3. HUMIRA [Suspect]
     Indication: ANKYLOSING SPONDYLITIS
     Route: 058
     Dates: start: 20110804, end: 20110804
  4. HUMIRA [Suspect]
     Indication: CROHN'S DISEASE
     Route: 058
     Dates: start: 20110721, end: 20110721
  5. HUMIRA [Suspect]
     Route: 058
     Dates: start: 20111024

REACTIONS (4)
  - HEADACHE [None]
  - ALOPECIA [None]
  - NAUSEA [None]
  - URTICARIA [None]
